FAERS Safety Report 10058517 (Version 1)
Quarter: 2014Q2

REPORT INFORMATION
  Report Type: Spontaneous
  Country: FR (occurrence: FR)
  Receive Date: 20140404
  Receipt Date: 20140404
  Transmission Date: 20141212
  Serious: Yes (Life-Threatening)
  Sender: FDA-Public Use
  Company Number: FR-ROCHE-1372265

PATIENT
  Age: 56 Year
  Sex: Female

DRUGS (19)
  1. TAMIFLU [Suspect]
     Indication: PRODUCT USED FOR UNKNOWN INDICATION
     Route: 048
     Dates: start: 20140114, end: 20140119
  2. LOVENOX [Suspect]
     Indication: PRODUCT USED FOR UNKNOWN INDICATION
     Route: 058
     Dates: start: 20140115, end: 20140117
  3. LOVENOX [Suspect]
     Route: 058
     Dates: start: 20140118, end: 20140120
  4. CLOPIDOGREL [Suspect]
     Indication: PRODUCT USED FOR UNKNOWN INDICATION
     Dosage: 75 MG
     Route: 048
     Dates: end: 20140120
  5. PIPERACILLINE [Suspect]
     Indication: PRODUCT USED FOR UNKNOWN INDICATION
     Route: 042
     Dates: start: 20140116, end: 20140126
  6. VANCOMYCINE [Suspect]
     Indication: PRODUCT USED FOR UNKNOWN INDICATION
     Route: 042
     Dates: start: 20140118, end: 20140125
  7. FLAGYL [Suspect]
     Indication: PRODUCT USED FOR UNKNOWN INDICATION
     Dosage: 500 MG
     Route: 048
     Dates: start: 20140119, end: 20140120
  8. TAZOBACTAM [Suspect]
     Indication: PRODUCT USED FOR UNKNOWN INDICATION
     Route: 042
     Dates: start: 20140116, end: 20140126
  9. CRESTOR [Concomitant]
     Route: 048
  10. VERAPAMIL [Concomitant]
     Dosage: 1 DF DAILY
     Route: 065
  11. IKOREL [Concomitant]
     Dosage: 2 DF DAILY
     Route: 065
  12. ALDACTAZINE [Concomitant]
     Dosage: 0.5 DF DAILY
     Route: 065
  13. COVERSYL [Concomitant]
     Dosage: 1 DF DAILY
     Route: 065
  14. PLAVIX [Concomitant]
     Dosage: 1 DF DAILY
     Route: 065
  15. AMLOR [Concomitant]
     Dosage: 1 DF DAILY
     Route: 065
  16. EUPANTOL [Concomitant]
     Dosage: 1 DF DAILY
     Route: 065
  17. ALPRAZOLAM [Concomitant]
     Dosage: 1 DF DAILY
     Route: 065
  18. SEROPLEX [Concomitant]
     Dosage: 1 DF DAILY
     Route: 065
  19. ATARAX (UNITED STATES) [Concomitant]
     Dosage: 0.5 DF DAILY
     Route: 065

REACTIONS (3)
  - Retroperitoneal haematoma [Recovered/Resolved]
  - Abdominal wall haematoma [Recovered/Resolved]
  - Haemorrhagic anaemia [Recovering/Resolving]
